FAERS Safety Report 18622651 (Version 1)
Quarter: 2020Q4

REPORT INFORMATION
  Report Type: Spontaneous
  Country: US (occurrence: US)
  Receive Date: 20201215
  Receipt Date: 20201215
  Transmission Date: 20210114
  Serious: No
  Sender: FDA-Public Use
  Company Number: None

PATIENT
  Age: 35 Year
  Sex: Male
  Weight: 113.4 kg

DRUGS (2)
  1. SUBOXONE [Suspect]
     Active Substance: BUPRENORPHINE HYDROCHLORIDE\NALOXONE HYDROCHLORIDE
     Indication: DRUG USE DISORDER
     Dosage: ?          OTHER DOSE:8/2 TAB;OTHER FREQUENCY:TWICE;OTHER ROUTE:SL-DAILY?
     Dates: end: 20201130
  2. SUBOXONE [Suspect]
     Active Substance: BUPRENORPHINE HYDROCHLORIDE\NALOXONE HYDROCHLORIDE
     Indication: DRUG USE DISORDER
     Dosage: ?          OTHER DOSE:8/2MG FILM;OTHER FREQUENCY:TWICE;OTHER ROUTE:SL-DAILY?
     Dates: start: 20190529, end: 20201123

REACTIONS (2)
  - Splinter [None]
  - Muscle spasms [None]

NARRATIVE: CASE EVENT DATE: 20201123
